FAERS Safety Report 20917966 (Version 3)
Quarter: 2022Q3

REPORT INFORMATION
  Report Type: Spontaneous
  Country: FR (occurrence: FR)
  Receive Date: 20220606
  Receipt Date: 20220721
  Transmission Date: 20221027
  Serious: Yes (Death, Other)
  Sender: FDA-Public Use
  Company Number: FR-BRISTOL-MYERS SQUIBB COMPANY-2022-051804

PATIENT
  Age: 61 Year
  Sex: Female
  Weight: 52 kg

DRUGS (2)
  1. NIVOLUMAB [Suspect]
     Active Substance: NIVOLUMAB
     Indication: Adenocarcinoma gastric
     Route: 042
     Dates: end: 20220523
  2. FENTANYL [Concomitant]
     Active Substance: FENTANYL
     Indication: Product used for unknown indication
     Dosage: 50MG/L
     Route: 065
     Dates: start: 20220423

REACTIONS (1)
  - Sepsis [Fatal]
